FAERS Safety Report 10440275 (Version 2)
Quarter: 2014Q3

REPORT INFORMATION
  Report Type: Spontaneous
  Country: US (occurrence: US)
  Receive Date: 20140908
  Receipt Date: 20140908
  Transmission Date: 20150326
  Serious: No
  Sender: FDA-Public Use
  Company Number: US-BRISTOL-MYERS SQUIBB COMPANY-20707808

PATIENT
  Age: 27 Year
  Sex: Male

DRUGS (7)
  1. BUSPAR [Concomitant]
     Active Substance: BUSPIRONE HYDROCHLORIDE
  2. ZOLOFT [Concomitant]
     Active Substance: SERTRALINE HYDROCHLORIDE
     Dosage: 100MG STOPED ON 5JUN14
  3. ABILIFY [Suspect]
     Active Substance: ARIPIPRAZOLE
     Indication: ANXIETY
     Dosage: 17APR14 5MG AND DECREASED TO 2MG ON 5JUN14
     Route: 048
     Dates: start: 20140501
  4. BUSPAR [Concomitant]
     Active Substance: BUSPIRONE HYDROCHLORIDE
  5. ABILIFY [Suspect]
     Active Substance: ARIPIPRAZOLE
     Indication: DEPRESSION
     Dosage: 17APR14 5MG AND DECREASED TO 2MG ON 5JUN14
     Route: 048
     Dates: start: 20140501
  6. LEXAPRO [Concomitant]
     Active Substance: ESCITALOPRAM OXALATE
  7. ABILIFY [Suspect]
     Active Substance: ARIPIPRAZOLE
     Indication: PANIC DISORDER
     Dosage: 17APR14 5MG AND DECREASED TO 2MG ON 5JUN14
     Route: 048
     Dates: start: 20140501

REACTIONS (6)
  - Off label use [Unknown]
  - Middle insomnia [Unknown]
  - Somnambulism [Unknown]
  - Nightmare [Unknown]
  - Poor quality sleep [Unknown]
  - Nausea [Unknown]

NARRATIVE: CASE EVENT DATE: 20140501
